FAERS Safety Report 7213202 (Version 9)
Quarter: 2024Q2

REPORT INFORMATION
  Report Type: Report from Study
  Country: US (occurrence: US)
  Receive Date: 20091211
  Receipt Date: 20240626
  Transmission Date: 20240716
  Serious: Yes (Hospitalization)
  Sender: FDA-Public Use
  Company Number: US-JNJFOC-20091201881

PATIENT
  Age: 65 Year
  Sex: Female
  Weight: 90.8 kg

DRUGS (8)
  1. SIMPONI [Suspect]
     Active Substance: GOLIMUMAB
     Indication: Psoriasis
     Dosage: RECEIVED 1 DOSE
     Route: 058
     Dates: start: 20090727, end: 20090727
  2. REMICADE [Suspect]
     Active Substance: INFLIXIMAB
     Indication: Psoriasis
     Route: 041
     Dates: start: 2001
  3. LEVEMIR [Concomitant]
     Active Substance: INSULIN DETEMIR
  4. ZOLPIDEM [Concomitant]
     Active Substance: ZOLPIDEM TARTRATE
  5. LASIX [Concomitant]
     Active Substance: FUROSEMIDE
  6. LASIX [Concomitant]
     Active Substance: FUROSEMIDE
  7. POTASSIUM CHLORIDE [Concomitant]
     Active Substance: POTASSIUM CHLORIDE
     Route: 048
  8. SPIRONOLACTONE [Concomitant]
     Active Substance: SPIRONOLACTONE
     Route: 048

REACTIONS (7)
  - Cor pulmonale [Recovered/Resolved]
  - Acute kidney injury [Recovered/Resolved]
  - Haemoptysis [Recovered/Resolved]
  - Bronchiectasis [Recovered/Resolved]
  - Squamous cell carcinoma [Unknown]
  - Generalised oedema [Unknown]
  - Upper respiratory tract infection [Unknown]

NARRATIVE: CASE EVENT DATE: 20090901
